FAERS Safety Report 5758672-5 (Version None)
Quarter: 2008Q2

REPORT INFORMATION
  Report Type: 
  Country: None (occurrence: None)
  Receive Date: 20080507
  Receipt Date: 20070625
  Transmission Date: 20081010
  Serious: Yes (Hospitalization)
  Sender: FDA-Public Use
  Company Number: 235187K07USA

PATIENT
  Age: 48 Year
  Sex: Female
  Weight: 115.2136 kg

DRUGS (8)
  1. REBIF [Suspect]
     Indication: MULTIPLE SCLEROSIS
     Dosage: 44 MCG, 3 IN 1 WEEKS, SUBCUTANEOUS
     Route: 058
     Dates: start: 20040810
  2. AMANTADINE (AMANTADINE /00055901/) [Concomitant]
  3. GABAPENTIN [Concomitant]
  4. ARICEPT [Concomitant]
  5. FLONASE [Concomitant]
  6. IBUPROFEN [Concomitant]
  7. ENABLEX (DARIFENACIN) [Concomitant]
  8. TRAZODONE HCL [Concomitant]

REACTIONS (8)
  - DEHYDRATION [None]
  - DIARRHOEA [None]
  - HEMIPARESIS [None]
  - MULTIPLE SCLEROSIS RELAPSE [None]
  - NAUSEA [None]
  - NERVOUSNESS [None]
  - TREMOR [None]
  - VOMITING [None]
